FAERS Safety Report 9618138 (Version 2)
Quarter: 2013Q4

REPORT INFORMATION
  Report Type: Report from Study
  Country: JP (occurrence: JP)
  Receive Date: 20131014
  Receipt Date: 20131014
  Transmission Date: 20140711
  Serious: Yes (Death, Other)
  Sender: FDA-Public Use
  Company Number: JP-PFIZER INC-2013289334

PATIENT
  Sex: Male

DRUGS (3)
  1. SERTRALINE HCL [Suspect]
     Indication: MAJOR DEPRESSION
     Dosage: 25 MG, DAILY
  2. SERTRALINE HCL [Suspect]
     Dosage: 50 MG, DAILY
  3. SERTRALINE HCL [Suspect]
     Dosage: UNK,  DAILY

REACTIONS (2)
  - Drug ineffective [Unknown]
  - Completed suicide [Fatal]
